FAERS Safety Report 12492488 (Version 1)
Quarter: 2016Q2

REPORT INFORMATION
  Report Type: Spontaneous
  Country: US (occurrence: None)
  Receive Date: 20160622
  Receipt Date: 20160622
  Transmission Date: 20160815
  Serious: Yes (Other)
  Sender: FDA-Public Use
  Company Number: None

PATIENT
  Age: 54 Year
  Sex: Female
  Weight: 51 kg

DRUGS (1)
  1. OXALIPLATIN, 5MG/ML, UNAVAILABLE FOR REPORT [Suspect]
     Active Substance: OXALIPLATIN
     Indication: NEOPLASM MALIGNANT
     Route: 041
     Dates: start: 20160420, end: 20160608

REACTIONS (5)
  - Hypoaesthesia oral [None]
  - Dysphagia [None]
  - Paraesthesia [None]
  - Hypoaesthesia [None]
  - Paraesthesia oral [None]

NARRATIVE: CASE EVENT DATE: 20160608
